FAERS Safety Report 13570235 (Version 2)
Quarter: 2017Q2

REPORT INFORMATION
  Report Type: Report from Study
  Country: US (occurrence: US)
  Receive Date: 20170522
  Receipt Date: 20170607
  Transmission Date: 20170830
  Serious: Yes (Hospitalization)
  Sender: FDA-Public Use
  Company Number: US-EXELIXIS-CABO-17009174

PATIENT
  Sex: Male

DRUGS (10)
  1. GABAPENTIN. [Concomitant]
     Active Substance: GABAPENTIN
  2. KEPPRA [Concomitant]
     Active Substance: LEVETIRACETAM
  3. FENTANYL. [Concomitant]
     Active Substance: FENTANYL
  4. INLYTA [Concomitant]
     Active Substance: AXITINIB
  5. OXYCODONE [Concomitant]
     Active Substance: OXYCODONE
  6. CIALIS [Concomitant]
     Active Substance: TADALAFIL
  7. NORVASC [Concomitant]
     Active Substance: AMLODIPINE BESYLATE
  8. COMETRIQ [Suspect]
     Active Substance: CABOZANTINIB S-MALATE
     Indication: RENAL CANCER
     Dosage: 60 MG, QD
     Route: 048
     Dates: start: 20160310
  9. JANUMET [Concomitant]
     Active Substance: METFORMIN HYDROCHLORIDE\SITAGLIPTIN PHOSPHATE
  10. ZOFRAN [Concomitant]
     Active Substance: ONDANSETRON HYDROCHLORIDE

REACTIONS (2)
  - Pain [Unknown]
  - Malignant neoplasm progression [Unknown]
